FAERS Safety Report 10597834 (Version 1)
Quarter: 2014Q4

REPORT INFORMATION
  Report Type: Spontaneous
  Country: GB (occurrence: GB)
  Receive Date: 20141121
  Receipt Date: 20141121
  Transmission Date: 20150529
  Serious: Yes (Death, Hospitalization, Other)
  Sender: FDA-Public Use
  Company Number: GB-CIPLA LTD.-2014GB01987

PATIENT
  Age: 80 Year
  Sex: Male

DRUGS (2)
  1. PLACEBO [Suspect]
     Active Substance: UNSPECIFIED INGREDIENT
     Indication: DEMENTIA ALZHEIMER^S TYPE
     Dosage: UNK
  2. DONEPEZIL [Suspect]
     Active Substance: DONEPEZIL
     Indication: DEMENTIA ALZHEIMER^S TYPE
     Dosage: 10 MG, PER DAY 3 OR MORE THAN 3 MONTHS

REACTIONS (3)
  - Bronchopneumonia [Unknown]
  - Femoral neck fracture [Unknown]
  - Death [Unknown]
